FAERS Safety Report 23620263 (Version 2)
Quarter: 2024Q1

REPORT INFORMATION
  Report Type: Spontaneous
  Country: US (occurrence: US)
  Receive Date: 20240312
  Receipt Date: 20240327
  Transmission Date: 20240409
  Serious: No
  Sender: FDA-Public Use
  Company Number: US-SA-SAC20240306000287

PATIENT
  Sex: Male
  Weight: 85.714 kg

DRUGS (1)
  1. DUPIXENT [Suspect]
     Active Substance: DUPILUMAB
     Indication: Dermatitis atopic
     Dosage: 300 MG, QOW
     Route: 058

REACTIONS (4)
  - Weight decreased [Unknown]
  - Lymphocyte count decreased [Unknown]
  - Dermatitis atopic [Unknown]
  - Therapeutic response shortened [Unknown]
